FAERS Safety Report 6505030-1 (Version None)
Quarter: 2009Q4

REPORT INFORMATION
  Report Type: 
  Country: None (occurrence: None)
  Receive Date: 20091218
  Receipt Date: 20091210
  Transmission Date: 20100525
  Serious: Yes (Other)
  Sender: FDA-Public Use
  Company Number: JP-JNJFOC-20091203757

PATIENT
  Age: 46 Year
  Sex: Female

DRUGS (7)
  1. LEUSTATIN [Suspect]
     Indication: B-CELL LYMPHOMA
     Dosage: 0.09 MG/ KG WAS ADMINISTERED DAILY IN 2 HOURS INTRAVENOUS INFUSION FOR 5 CONSECUTIVE DAYS
     Route: 041
  2. CYCLOPHOSPHAMIDE [Suspect]
     Indication: B-CELL LYMPHOMA
     Route: 065
  3. DOXORUBICIN HCL [Suspect]
     Indication: B-CELL LYMPHOMA
     Route: 065
  4. VINCRISTINE [Suspect]
     Indication: B-CELL LYMPHOMA
     Route: 065
  5. PREDNISOLONE [Suspect]
     Indication: B-CELL LYMPHOMA
     Route: 065
  6. RITUXIMAB [Suspect]
     Indication: B-CELL LYMPHOMA
     Route: 065
  7. TRIMETHOPRIM + SULFAMETHOXAZOLE [Concomitant]
     Indication: ANTIFUNGAL PROPHYLAXIS
     Route: 048

REACTIONS (8)
  - CONSTIPATION [None]
  - HYPOALBUMINAEMIA [None]
  - HYPONATRAEMIA [None]
  - LYMPHOPENIA [None]
  - NEUTROPENIA [None]
  - OFF LABEL USE [None]
  - THROMBOCYTOPENIA [None]
  - WEIGHT INCREASED [None]
